FAERS Safety Report 9893539 (Version 1)
Quarter: 2014Q1

REPORT INFORMATION
  Report Type: Spontaneous
  Country: US (occurrence: US)
  Receive Date: 20140213
  Receipt Date: 20140213
  Transmission Date: 20141002
  Serious: Yes (Other)
  Sender: FDA-Public Use
  Company Number: US-TEVA-462215USA

PATIENT
  Age: 62 Year
  Sex: Female
  Weight: 90.8 kg

DRUGS (9)
  1. NUVIGIL [Suspect]
     Indication: NARCOLEPSY
  2. NUVIGIL [Suspect]
     Indication: SLEEP APNOEA SYNDROME
  3. ATORVASTATIN [Concomitant]
     Indication: BLOOD CHOLESTEROL INCREASED
  4. METOPROLOL [Concomitant]
     Indication: HYPERTENSION
  5. AMLODIPINE BESYLATE [Concomitant]
     Indication: HYPERTENSION
  6. CLOPIDOGREL [Concomitant]
     Indication: ANTICOAGULANT THERAPY
  7. ASPIRIN [Concomitant]
     Indication: ANTICOAGULANT THERAPY
  8. DETROL [Concomitant]
     Indication: MICTURITION URGENCY
  9. ESTRACE [Concomitant]
     Indication: HORMONE REPLACEMENT THERAPY

REACTIONS (9)
  - Choking [Unknown]
  - Dyspnoea [Recovered/Resolved]
  - Epistaxis [Not Recovered/Not Resolved]
  - Burning sensation [Recovered/Resolved]
  - Haemoptysis [Recovered/Resolved]
  - Dysphagia [Not Recovered/Not Resolved]
  - Cough [Unknown]
  - Chest pain [Not Recovered/Not Resolved]
  - Chest discomfort [Not Recovered/Not Resolved]
